FAERS Safety Report 10770747 (Version 1)
Quarter: 2015Q1

REPORT INFORMATION
  Report Type: Spontaneous
  Country: US (occurrence: None)
  Receive Date: 20150206
  Receipt Date: 20150206
  Transmission Date: 20150721
  Serious: No
  Sender: FDA-Public Use
  Company Number: HYP201309-000059

PATIENT
  Age: 11 Year
  Sex: Female
  Weight: 47.17 kg

DRUGS (9)
  1. RAVICTI [Suspect]
     Active Substance: GLYCEROL PHENYLBUTYRATE
     Indication: UREA CYCLE ENZYME DEFICIENCY
     Dates: start: 20131016, end: 20140401
  2. RAVICTI [Suspect]
     Active Substance: GLYCEROL PHENYLBUTYRATE
     Indication: UREA CYCLE ENZYME DEFICIENCY
     Route: 048
     Dates: start: 20140402
  3. ARGININE [Concomitant]
     Active Substance: ARGININE
  4. VALINE [Concomitant]
     Active Substance: VALINE
  5. RAVICTI [Suspect]
     Active Substance: GLYCEROL PHENYLBUTYRATE
     Indication: UREA CYCLE ENZYME DEFICIENCY
     Route: 048
     Dates: start: 20130920, end: 20130924
  6. RAVICTI [Suspect]
     Active Substance: GLYCEROL PHENYLBUTYRATE
     Indication: UREA CYCLE ENZYME DEFICIENCY
     Route: 048
     Dates: start: 20130924, end: 20131015
  7. ISOLEUCINE [Concomitant]
     Active Substance: ISOLEUCINE
  8. RAVICTI [Suspect]
     Active Substance: GLYCEROL PHENYLBUTYRATE
     Indication: UREA CYCLE ENZYME DEFICIENCY
     Route: 048
     Dates: start: 201306, end: 20130920
  9. LEUCINE [Concomitant]
     Active Substance: LEUCINE

REACTIONS (10)
  - Lethargy [None]
  - Vomiting [None]
  - Ammonia increased [None]
  - Abdominal pain upper [None]
  - Memory impairment [None]
  - Nausea [None]
  - Decreased appetite [None]
  - Somnolence [None]
  - Mental impairment [None]
  - Weight decreased [None]

NARRATIVE: CASE EVENT DATE: 20130905
